FAERS Safety Report 8261232-8 (Version None)
Quarter: 2012Q2

REPORT INFORMATION
  Report Type: 
  Country: None (occurrence: None)
  Receive Date: 20120405
  Receipt Date: 20120326
  Transmission Date: 20120825
  Serious: Yes (Disabling, Other)
  Sender: FDA-Public Use
  Company Number: US-ELI_LILLY_AND_COMPANY-US201112004279

PATIENT
  Sex: Male

DRUGS (4)
  1. INFLUENZA VACCINE [Concomitant]
     Dosage: UNK
     Dates: start: 19980101
  2. HUMULIN R [Suspect]
     Indication: DIABETES MELLITUS
     Dosage: UNK, EACH MORNING
  3. HUMULIN R [Suspect]
     Dosage: UNK, OTHER
  4. HUMALOG [Suspect]
     Indication: DIABETES MELLITUS
     Dosage: UNK UNK, EACH EVENING

REACTIONS (1)
  - GUILLAIN-BARRE SYNDROME [None]
